APPROVED DRUG PRODUCT: DEPAKOTE CP
Active Ingredient: DIVALPROEX SODIUM
Strength: EQ 250MG BASE
Dosage Form/Route: TABLET, DELAYED RELEASE;ORAL
Application: N019794 | Product #001
Applicant: ABBOTT LABORATORIES PHARMACEUTICAL PRODUCTS DIV
Approved: Jul 11, 1990 | RLD: No | RS: No | Type: DISCN